FAERS Safety Report 9247952 (Version 1)
Quarter: 2013Q2

REPORT INFORMATION
  Report Type: Spontaneous
  Country: US (occurrence: US)
  Receive Date: 20130423
  Receipt Date: 20130423
  Transmission Date: 20140414
  Serious: No
  Sender: FDA-Public Use
  Company Number: US-MYLANLABS-2013S1000709

PATIENT
  Age: 78 Year
  Sex: Male

DRUGS (2)
  1. IPRATROPIUM BROMIDE AND ALBUTEROL SULFATE INHALATION SOLUTION [Suspect]
     Indication: CHRONIC OBSTRUCTIVE PULMONARY DISEASE
     Dosage: Q 4-6 HRS
     Route: 055
     Dates: start: 20091231, end: 201201
  2. IPRATROPIUM BROMIDE AND ALBUTEROL SULFATE INHALATION SOLUTION [Suspect]
     Indication: CHRONIC OBSTRUCTIVE PULMONARY DISEASE
     Dosage: Q4 -6 HRS
     Route: 055
     Dates: start: 201202

REACTIONS (1)
  - Drug effect decreased [Not Recovered/Not Resolved]
